FAERS Safety Report 12962184 (Version 1)
Quarter: 2016Q4

REPORT INFORMATION
  Report Type: Spontaneous
  Country: US (occurrence: US)
  Receive Date: 20161121
  Receipt Date: 20161121
  Transmission Date: 20170207
  Serious: No
  Sender: FDA-Public Use
  Company Number: US-PRINSTON PHARMACEUTICAL INC.-2016PRN00004

PATIENT
  Sex: Female
  Weight: 83.9 kg

DRUGS (2)
  1. IRBESARTAN. [Suspect]
     Active Substance: IRBESARTAN
     Indication: BLOOD PRESSURE ABNORMAL
     Dosage: 75 MG, 1X/DAY
     Route: 048
     Dates: start: 2015, end: 20160105
  2. ATENOLOL. [Concomitant]
     Active Substance: ATENOLOL
     Dosage: 25 MG, 1X/DAY

REACTIONS (10)
  - Nervousness [Recovering/Resolving]
  - Fatigue [Recovering/Resolving]
  - Dizziness [Recovering/Resolving]
  - Feeling abnormal [Recovering/Resolving]
  - Tremor [Recovered/Resolved]
  - Mental impairment [Recovering/Resolving]
  - Malaise [Recovered/Resolved]
  - Muscle twitching [Recovering/Resolving]
  - Myalgia [Recovering/Resolving]
  - Balance disorder [Recovering/Resolving]

NARRATIVE: CASE EVENT DATE: 2015
